FAERS Safety Report 24557312 (Version 1)
Quarter: 2024Q4

REPORT INFORMATION
  Report Type: Spontaneous
  Country: US (occurrence: None)
  Receive Date: 20241028
  Receipt Date: 20241028
  Transmission Date: 20250115
  Serious: Yes (Other)
  Sender: Public
  Company Number: None

PATIENT
  Age: 41 Year
  Sex: Male
  Weight: 86.85 kg

DRUGS (5)
  1. RISPERIDONE [Suspect]
     Active Substance: RISPERIDONE
     Indication: Generalised anxiety disorder
     Dosage: FREQUENCY : AT BEDTIME;?
     Route: 048
     Dates: start: 20241024, end: 20241026
  2. RISPERIDONE [Suspect]
     Active Substance: RISPERIDONE
     Indication: Major depression
  3. BUPROPION [Concomitant]
     Active Substance: BUPROPION
  4. RISPERIDONE [Concomitant]
     Active Substance: RISPERIDONE
  5. MINERALS\VITAMINS [Concomitant]
     Active Substance: MINERALS\VITAMINS

REACTIONS (6)
  - Heart rate increased [None]
  - Fatigue [None]
  - Fatigue [None]
  - Heart rate irregular [None]
  - Headache [None]
  - Asthenia [None]

NARRATIVE: CASE EVENT DATE: 20241026
